FAERS Safety Report 16511160 (Version 1)
Quarter: 2019Q3

REPORT INFORMATION
  Report Type: Spontaneous
  Country: US (occurrence: US)
  Receive Date: 20190701
  Receipt Date: 20190701
  Transmission Date: 20191004
  Serious: Yes (Hospitalization, Disabling, Other)
  Sender: FDA-Public Use
  Company Number: None

PATIENT
  Age: 51 Year
  Sex: Female
  Weight: 117 kg

DRUGS (1)
  1. ALLOPURINOL. [Suspect]
     Active Substance: ALLOPURINOL
     Indication: GOUT
     Route: 048
     Dates: start: 20190223, end: 20190518

REACTIONS (14)
  - Renal disorder [None]
  - Drug reaction with eosinophilia and systemic symptoms [None]
  - Urticaria [None]
  - Heart rate decreased [None]
  - Dyspnoea [None]
  - Kidney infection [None]
  - Infection [None]
  - Diabetes mellitus [None]
  - Liver disorder [None]
  - Hypotension [None]
  - White blood cell count increased [None]
  - Body temperature increased [None]
  - Rash generalised [None]
  - Hepatic infection [None]

NARRATIVE: CASE EVENT DATE: 20190519
